FAERS Safety Report 13154565 (Version 1)
Quarter: 2017Q1

REPORT INFORMATION
  Report Type: Spontaneous
  Country: US (occurrence: US)
  Receive Date: 20170124
  Receipt Date: 20170124
  Transmission Date: 20170428
  Serious: Yes (Disabling)
  Sender: FDA-Public Use
  Company Number: None

PATIENT
  Age: 47 Year
  Sex: Female
  Weight: 58.5 kg

DRUGS (8)
  1. LIPITOR [Concomitant]
     Active Substance: ATORVASTATIN CALCIUM
  2. VIT D SUPPLEMENT [Concomitant]
  3. NUVARING [Suspect]
     Active Substance: ETHINYL ESTRADIOL\ETONOGESTREL
     Indication: CONTRACEPTION
     Dates: start: 20070101, end: 20160815
  4. GENERIC ZIAC [Concomitant]
  5. NORTRIPTYLINE [Concomitant]
     Active Substance: NORTRIPTYLINE
  6. ZYRTEC [Concomitant]
     Active Substance: CETIRIZINE HYDROCHLORIDE
  7. SYNTHROID [Concomitant]
     Active Substance: LEVOTHYROXINE SODIUM
  8. REFRESH OR MOISTURIZING GEL EYE DROPS [Concomitant]

REACTIONS (6)
  - Diarrhoea [None]
  - Hepatic cyst [None]
  - Abdominal pain upper [None]
  - Nausea [None]
  - Vomiting [None]
  - Hepatic adenoma [None]

NARRATIVE: CASE EVENT DATE: 20090206
